FAERS Safety Report 6301903-3 (Version None)
Quarter: 2009Q3

REPORT INFORMATION
  Report Type: 
  Country: None (occurrence: None)
  Receive Date: 20090805
  Receipt Date: 20090723
  Transmission Date: 20100115
  Serious: Yes (Other)
  Sender: FDA-Public Use
  Company Number: 1000003935

PATIENT
  Sex: Male

DRUGS (15)
  1. CITALOPRAM HYDROBROMIDE [Suspect]
     Indication: ANXIETY
     Dosage: 10 MG (10 MG, 1 IN 1 D), ORAL
     Route: 048
     Dates: start: 20070501, end: 20080801
  2. CITALOPRAM HYDROBROMIDE [Suspect]
     Indication: DEPRESSION
     Dosage: 10 MG (10 MG, 1 IN 1 D), ORAL
     Route: 048
     Dates: start: 20070501, end: 20080801
  3. CITALOPRAM HYDROBROMIDE [Suspect]
     Indication: ANXIETY
     Dosage: 10 MG (10 MG, 1 IN 1 D), ORAL
     Route: 048
     Dates: start: 20080801, end: 20080801
  4. CITALOPRAM HYDROBROMIDE [Suspect]
     Indication: DEPRESSION
     Dosage: 10 MG (10 MG, 1 IN 1 D), ORAL
     Route: 048
     Dates: start: 20080801, end: 20080801
  5. CITALOPRAM HYDROBROMIDE [Suspect]
     Indication: ANXIETY
     Dosage: 10 MG, (10 MG 1 IN 1 D), ORAL
     Route: 048
     Dates: start: 20090301, end: 20090501
  6. CITALOPRAM HYDROBROMIDE [Suspect]
     Indication: DEPRESSION
     Dosage: 10 MG, (10 MG 1 IN 1 D), ORAL
     Route: 048
     Dates: start: 20090301, end: 20090501
  7. CITALOPRAM HYDROBROMIDE [Suspect]
     Dosage: ORAL
     Route: 048
  8. EDRONAX [Concomitant]
  9. AMITRIPTYLINE [Concomitant]
  10. EFFEXOR [Concomitant]
  11. GAMANIL [Concomitant]
  12. ZYBAN [Concomitant]
  13. ZIMOVANE [Concomitant]
  14. XANAX [Concomitant]
  15. ARCOXIA [Concomitant]

REACTIONS (1)
  - BURNING SENSATION [None]
